FAERS Safety Report 5563569-X (Version None)
Quarter: 2007Q4

REPORT INFORMATION
  Report Type: 
  Country: None (occurrence: None)
  Receive Date: 20071217
  Receipt Date: 20070723
  Transmission Date: 20080405
  Serious: Yes (Other)
  Sender: FDA-Public Use
  Company Number: US-ASTRAZENECA-2007UW15050

PATIENT
  Age: 639 Month
  Sex: Male
  Weight: 91.8 kg

DRUGS (6)
  1. CRESTOR [Suspect]
     Route: 048
  2. NIASPAN [Concomitant]
  3. ASPIRIN [Concomitant]
     Indication: ANTIPLATELET THERAPY
     Route: 048
  4. GLUCOPHAGE [Concomitant]
     Indication: TYPE 2 DIABETES MELLITUS
     Route: 048
  5. BYETTA [Concomitant]
     Indication: TYPE 2 DIABETES MELLITUS
     Route: 058
  6. OMACOR [Concomitant]
     Indication: DYSLIPIDAEMIA
     Route: 048

REACTIONS (2)
  - BLOOD CREATINE PHOSPHOKINASE INCREASED [None]
  - MYALGIA [None]
